FAERS Safety Report 7474064-5 (Version None)
Quarter: 2011Q2

REPORT INFORMATION
  Report Type: 
  Country: None (occurrence: None)
  Receive Date: 20110511
  Receipt Date: 20110504
  Transmission Date: 20111010
  Serious: Yes (Other)
  Sender: FDA-Public Use
  Company Number: PHHY2011US23959

PATIENT
  Sex: Female

DRUGS (6)
  1. ACTOS [Concomitant]
     Dosage: 30 MG, 1 DF, QD
     Route: 048
  2. LEVEMIR [Concomitant]
     Dosage: 30 U, QD
  3. DIOVAN [Suspect]
     Dosage: 160 MG, QD
  4. GLUCOVANCE [Concomitant]
     Dosage: 5/500 MG, 2 DF, BID
     Route: 048
  5. DRUG USED IN DIABETES [Concomitant]
  6. ZOCOR [Concomitant]
     Dosage: 40 MG, 1 DF, QD
     Route: 048

REACTIONS (5)
  - IMMOBILE [None]
  - DIZZINESS [None]
  - NAUSEA [None]
  - BLOOD PRESSURE INCREASED [None]
  - ANKLE FRACTURE [None]
